FAERS Safety Report 8330202-3 (Version None)
Quarter: 2012Q2

REPORT INFORMATION
  Report Type: 
  Country: None (occurrence: None)
  Receive Date: 20120502
  Receipt Date: 20120426
  Transmission Date: 20120825
  Serious: Yes (Hospitalization, Other)
  Sender: FDA-Public Use
  Company Number: US-TEVA-335770USA

PATIENT
  Sex: Male

DRUGS (5)
  1. ATORVASTATIN CALCIUM [Concomitant]
     Route: 048
  2. FENTANYL [Concomitant]
     Indication: PAIN
     Route: 061
  3. ACTIQ [Suspect]
     Indication: PAIN IN EXTREMITY
     Dosage: 1600 MCG, 1-2 DAILY PRN
     Route: 002
     Dates: start: 20010101, end: 20120420
  4. ALPRAZOLAM [Concomitant]
     Indication: NERVOUSNESS
     Dosage: 4 MILLIGRAM;
     Route: 048
  5. TIOTROPIUM BROMIDE [Concomitant]
     Indication: CHRONIC OBSTRUCTIVE PULMONARY DISEASE
     Route: 048

REACTIONS (9)
  - THROMBOSIS [None]
  - OFF LABEL USE [None]
  - TRANSIENT ISCHAEMIC ATTACK [None]
  - CONVULSION [None]
  - TOE AMPUTATION [None]
  - OSTEOMYELITIS [None]
  - PYREXIA [None]
  - DRUG PRESCRIBING ERROR [None]
  - RIB FRACTURE [None]
